FAERS Safety Report 19505236 (Version 3)
Quarter: 2021Q4

REPORT INFORMATION
  Report Type: Report from Study
  Country: None (occurrence: BR)
  Receive Date: 20210707
  Receipt Date: 20211004
  Transmission Date: 20220303
  Serious: Yes (Hospitalization, Disabling, Other)
  Sender: FDA-Public Use
  Company Number: BR-ABBVIE-21K-020-3977386-00

PATIENT
  Sex: Female
  Weight: 75 kg

DRUGS (4)
  1. HUMIRA [Suspect]
     Active Substance: ADALIMUMAB
     Indication: Crohn^s disease
     Dosage: UNSPECIFIED DOSE
     Route: 058
     Dates: start: 20171006
  2. HUMIRA [Suspect]
     Active Substance: ADALIMUMAB
     Route: 058
  3. COVID-19 VACCINE [Concomitant]
     Indication: COVID-19 immunisation
     Dosage: 1 DOSE
     Route: 030
     Dates: start: 20210313, end: 20210313
  4. COVID-19 VACCINE [Concomitant]
     Dosage: 2 DOSE
     Route: 030
     Dates: start: 20210403, end: 20210403

REACTIONS (6)
  - Mobility decreased [Recovered/Resolved]
  - Femur fracture [Recovered/Resolved]
  - COVID-19 [Recovered/Resolved]
  - Fall [Recovered/Resolved]
  - Muscle spasms [Recovering/Resolving]
  - Feeding disorder [Recovered/Resolved]

NARRATIVE: CASE EVENT DATE: 20180101
